FAERS Safety Report 16462743 (Version 1)
Quarter: 2019Q2

REPORT INFORMATION
  Report Type: Spontaneous
  Country: ES (occurrence: ES)
  Receive Date: 20190621
  Receipt Date: 20190621
  Transmission Date: 20190711
  Serious: Yes (Other)
  Sender: FDA-Public Use
  Company Number: ES-ACCORD-126156

PATIENT
  Age: 61 Year
  Sex: Male

DRUGS (10)
  1. ENALAPRIL DAVUR [Concomitant]
     Dosage: 20 MG EFG TABLET, 28 TABLET
     Route: 048
  2. LANTHANUM CARBONATE. [Concomitant]
     Active Substance: LANTHANUM CARBONATE
     Dosage: 750 MG ORAL POWDER, 90 SACHETS
     Route: 048
  3. ALPRAZOLAM. [Concomitant]
     Active Substance: ALPRAZOLAM
     Dosage: ALTER 0.50 MG EFG TABLET, 30 TABLET
     Route: 048
  4. HEPARIN [Concomitant]
     Active Substance: HEPARIN SODIUM
     Dosage: ,500 IU ANTI-XA, 0.2 ML SOLUTION FOR INJECTION IN PRE-FILLEDSYRINGES, 10 PRE-FILLED 0.2 ML SYRINGES
     Route: 058
  5. MITOMYCIN. [Suspect]
     Active Substance: MITOMYCIN
     Indication: ADENOCARCINOMA
     Dosage: 40 MG (1 VIAL)
     Route: 043
     Dates: start: 20180917, end: 20181019
  6. SERTRALINE ALMUS [Concomitant]
     Dosage: 50 MG TABLETS COATED WITH EFG FILM, 30 TABLET
     Route: 048
  7. ARANESP [Concomitant]
     Active Substance: DARBEPOETIN ALFA
     Dosage: 80 MICROGRAMS SOLUTION FOR INJECTION IN PRE-FILLED SYRINGE
     Route: 058
  8. OMEPRAZOLE SANDOZ [Concomitant]
     Active Substance: OMEPRAZOLE
     Dosage: 20 MG HARD GASTRO-RESISTANT CAPSULES EFG, 28 CAPSULES
     Route: 048
  9. TAMSULOSIN RATIOPHARM [Concomitant]
     Dosage: 0.4 MG HARD CAPSULES MODIFIED RELEASE EFG, 30,CAPSULES
     Route: 048
  10. AMLODIPINE ARISTO [Concomitant]
     Dosage: 5 MG EFG TABLET, 30 TABLET
     Route: 048

REACTIONS (1)
  - Palmar-plantar erythrodysaesthesia syndrome [Unknown]

NARRATIVE: CASE EVENT DATE: 20181019
